FAERS Safety Report 18955364 (Version 1)
Quarter: 2021Q1

REPORT INFORMATION
  Report Type: Spontaneous
  Country: GB (occurrence: GB)
  Receive Date: 20210301
  Receipt Date: 20210301
  Transmission Date: 20210420
  Serious: Yes (Other)
  Sender: FDA-Public Use
  Company Number: GB-TEVA-2021-GB-1881979

PATIENT
  Age: 54 Year
  Sex: Male

DRUGS (2)
  1. RITONAVIR. [Interacting]
     Active Substance: RITONAVIR
     Indication: HIV INFECTION
  2. FLUTICASONE PROPIONATE. [Suspect]
     Active Substance: FLUTICASONE PROPIONATE
     Indication: ACUTE SINUSITIS
     Dosage: NASAL SPRAY PRN
     Route: 045
     Dates: start: 20190101, end: 20210101

REACTIONS (3)
  - Cushing^s syndrome [Unknown]
  - Drug interaction [Unknown]
  - Medication error [Unknown]
